FAERS Safety Report 5227203-0 (Version None)
Quarter: 2007Q1

REPORT INFORMATION
  Report Type: 
  Country: None (occurrence: None)
  Receive Date: 20070202
  Receipt Date: 20070123
  Transmission Date: 20070707
  Serious: Yes (Death, Hospitalization)
  Sender: FDA-Public Use
  Company Number: FR-GLAXOSMITHKLINE-B0441659A

PATIENT
  Age: 75 Year
  Sex: Female
  Weight: 90 kg

DRUGS (10)
  1. ARIXTRA [Suspect]
     Indication: VENOUS THROMBOSIS
     Dosage: 7.5MG PER DAY
     Route: 058
     Dates: start: 20060915, end: 20060920
  2. KLIPAL [Concomitant]
  3. PERINDOPRIL ERBUMINE [Concomitant]
     Indication: CARDIAC FAILURE
     Dosage: 2MG PER DAY
     Route: 048
  4. VASODILATOR [Concomitant]
  5. PHLEBOTONIC DRUG NOS [Concomitant]
  6. LASIX [Concomitant]
     Indication: HYPERTENSION
     Dosage: 40MG THREE TIMES PER DAY
     Route: 048
  7. POTASSIUM ACETATE [Concomitant]
  8. NITRODERM [Concomitant]
     Indication: ARTERITIS CORONARY
     Dosage: 10MG PER DAY
     Route: 061
  9. ACETAMINOPHEN [Concomitant]
     Indication: OSTEOARTHRITIS
     Dosage: 500MG FOUR TIMES PER DAY
     Route: 048
  10. INSULIN [Concomitant]
     Indication: DIABETES MELLITUS INSULIN-DEPENDENT
     Dosage: 1INJ TWICE PER DAY
     Route: 058

REACTIONS (5)
  - ABDOMINAL PAIN [None]
  - ANAEMIA [None]
  - AORTIC ANEURYSM RUPTURE [None]
  - HYPOTENSION [None]
  - INTRA-ABDOMINAL HAEMORRHAGE [None]
